FAERS Safety Report 14283986 (Version 1)
Quarter: 2017Q4

REPORT INFORMATION
  Report Type: Spontaneous
  Country: US (occurrence: US)
  Receive Date: 20171213
  Receipt Date: 20171213
  Transmission Date: 20180321
  Serious: Yes (Other)
  Sender: FDA-Public Use
  Company Number: None

PATIENT
  Age: 53 Year
  Sex: Female
  Weight: 122.4 kg

DRUGS (3)
  1. BIOFREEZE [Suspect]
     Active Substance: MENTHOL
     Indication: PHYSIOTHERAPY
     Dates: end: 20171205
  2. HYDROCORTISONE 2.5% CREAM [Concomitant]
     Active Substance: HYDROCORTISONE
  3. TRIAMCINOLONE ACETONIDE. [Concomitant]
     Active Substance: TRIAMCINOLONE ACETONIDE

REACTIONS (7)
  - Urticaria [None]
  - Dyspnoea [None]
  - Thermal burn [None]
  - Asthenia [None]
  - Pruritus [None]
  - Erythema [None]
  - Chest pain [None]

NARRATIVE: CASE EVENT DATE: 20171205
